FAERS Safety Report 20118784 (Version 1)
Quarter: 2021Q4

REPORT INFORMATION
  Report Type: Spontaneous
  Country: PL (occurrence: None)
  Receive Date: 20211126
  Receipt Date: 20211126
  Transmission Date: 20220304
  Serious: Yes (Hospitalization)
  Sender: FDA-Public Use
  Company Number: PL-ROCHE-2965505

PATIENT
  Age: 66 Year
  Sex: Female

DRUGS (1)
  1. OCREVUS [Suspect]
     Active Substance: OCRELIZUMAB
     Indication: Primary progressive multiple sclerosis
     Dosage: FIRST ADMINISTRATION: JUL-AUG/2020, ANOTHER ON 27/JAN/2021
     Route: 065

REACTIONS (2)
  - COVID-19 pneumonia [Unknown]
  - Respiratory failure [Unknown]
